FAERS Safety Report 9832100 (Version 1)
Quarter: 2014Q1

REPORT INFORMATION
  Report Type: Spontaneous
  Country: US (occurrence: US)
  Receive Date: 20140121
  Receipt Date: 20140121
  Transmission Date: 20141002
  Serious: Yes (Other)
  Sender: FDA-Public Use
  Company Number: US-ASTRAZENECA-2014SE02981

PATIENT
  Age: 70 Year
  Sex: Male
  Weight: 79.4 kg

DRUGS (20)
  1. LISINOPRIL [Suspect]
     Indication: BLOOD PRESSURE ABNORMAL
     Route: 048
  2. LISINOPRIL [Suspect]
     Indication: BLOOD PRESSURE ABNORMAL
     Route: 048
  3. OMEPRAZOLE [Suspect]
     Indication: GASTROOESOPHAGEAL REFLUX DISEASE
     Route: 048
  4. SEROQUEL [Suspect]
     Indication: BIPOLAR DISORDER
     Route: 048
  5. SEROQUEL [Suspect]
     Indication: BIPOLAR DISORDER
     Route: 048
  6. SEROQUEL [Suspect]
     Indication: BIPOLAR DISORDER
     Dosage: GENERIC, 300 MG, AT NIGHT
     Route: 065
     Dates: start: 2011
  7. INDOCIN [Suspect]
     Route: 065
  8. NORPRAMIN [Suspect]
     Route: 065
  9. LITHIUM [Suspect]
     Route: 065
  10. RISPERIDOL [Suspect]
     Route: 065
  11. DIVALPROEX ER [Concomitant]
     Indication: BIPOLAR DISORDER
  12. SYNTHROID [Concomitant]
     Indication: THYROID DISORDER
  13. LAMICTAL [Concomitant]
     Indication: BIPOLAR DISORDER
  14. LAMICTAL [Concomitant]
     Indication: BIPOLAR DISORDER
     Dosage: GENERIC
  15. AMLODIPINE [Concomitant]
     Indication: BLOOD PRESSURE ABNORMAL
  16. ALLOPURINOL [Concomitant]
     Indication: GOUT
  17. LUMIGAN [Concomitant]
     Indication: GLAUCOMA
     Dosage: UNK UNK
     Route: 047
  18. COMBIGAN [Concomitant]
     Indication: GLAUCOMA
     Dosage: UNK UNK
     Route: 047
  19. NAMENDA [Concomitant]
     Indication: COGNITIVE DISORDER
  20. ATAVAN [Concomitant]

REACTIONS (12)
  - Suicidal ideation [Unknown]
  - Tachyphrenia [Unknown]
  - Thyroid disorder [Unknown]
  - Rhinorrhoea [Unknown]
  - Malaise [Unknown]
  - Renal failure chronic [Unknown]
  - Sleep disorder due to general medical condition, insomnia type [Unknown]
  - Rash generalised [Unknown]
  - Blood creatinine increased [Unknown]
  - Dizziness [Recovered/Resolved]
  - Somnolence [Unknown]
  - Drug dose omission [Unknown]
